FAERS Safety Report 8302049-5 (Version None)
Quarter: 2012Q2

REPORT INFORMATION
  Report Type: 
  Country: None (occurrence: None)
  Receive Date: 20120420
  Receipt Date: 20120412
  Transmission Date: 20120825
  Serious: Yes (Hospitalization)
  Sender: FDA-Public Use
  Company Number: US-MERCK-1201USA03453

PATIENT
  Age: 69 Year
  Sex: Female
  Weight: 78 kg

DRUGS (3)
  1. CLARITIN [Concomitant]
     Route: 048
  2. FOSAMAX [Suspect]
     Route: 048
  3. FOSAMAX [Suspect]
     Indication: OSTEOPOROSIS
     Route: 048
     Dates: start: 20080101, end: 20110101

REACTIONS (17)
  - MUSCULOSKELETAL DISORDER [None]
  - ASTIGMATISM [None]
  - OROPHARYNGEAL PAIN [None]
  - EAR PAIN [None]
  - CATARACT [None]
  - HYPERTONIC BLADDER [None]
  - PRODUCTIVE COUGH [None]
  - NASAL CONGESTION [None]
  - UPPER-AIRWAY COUGH SYNDROME [None]
  - LARYNGITIS [None]
  - FEMUR FRACTURE [None]
  - ADVERSE EVENT [None]
  - MUSCLE STRAIN [None]
  - RESPIRATORY TRACT CONGESTION [None]
  - PIGMENTATION DISORDER [None]
  - SKELETAL INJURY [None]
  - FALL [None]
